FAERS Safety Report 18521411 (Version 1)
Quarter: 2020Q4

REPORT INFORMATION
  Report Type: Spontaneous
  Country: US (occurrence: US)
  Receive Date: 20201118
  Receipt Date: 20201118
  Transmission Date: 20210114
  Serious: Yes (Death)
  Sender: FDA-Public Use
  Company Number: None

PATIENT
  Age: 49 Year
  Sex: Female

DRUGS (2)
  1. AMIODARONE [Suspect]
     Active Substance: AMIODARONE
  2. METHIMAZOLE. [Suspect]
     Active Substance: METHIMAZOLE

REACTIONS (8)
  - Product use issue [None]
  - Pulseless electrical activity [None]
  - Ventricular fibrillation [None]
  - Therapy change [None]
  - Thyrotoxic crisis [None]
  - Brain injury [None]
  - Cardiac arrest [None]
  - Ventricular tachycardia [None]

NARRATIVE: CASE EVENT DATE: 20200918
